FAERS Safety Report 24747167 (Version 2)
Quarter: 2025Q3

REPORT INFORMATION
  Report Type: Report from Study
  Country: US (occurrence: US)
  Receive Date: 20241218
  Receipt Date: 20250803
  Transmission Date: 20251020
  Serious: Yes (Other)
  Sender: ALEXION PHARMACEUTICALS
  Company Number: US-AstraZeneca-CH-00764133A

PATIENT
  Sex: Female

DRUGS (1)
  1. DAPAGLIFLOZIN [Suspect]
     Active Substance: DAPAGLIFLOZIN

REACTIONS (5)
  - Glaucoma [Unknown]
  - Eye haemorrhage [Unknown]
  - Insomnia [Unknown]
  - Wrong technique in product usage process [Unknown]
  - Ill-defined disorder [Unknown]
